FAERS Safety Report 6075573-6 (Version None)
Quarter: 2009Q1

REPORT INFORMATION
  Report Type: 
  Country: None (occurrence: None)
  Receive Date: 20090210
  Receipt Date: 20090126
  Transmission Date: 20090719
  Serious: Yes (Hospitalization)
  Sender: FDA-Public Use
  Company Number: 2009000255

PATIENT
  Age: 69 Year
  Sex: Male

DRUGS (3)
  1. TARCEVA [Suspect]
     Dosage: QD, ORAL
     Route: 048
     Dates: start: 20081107
  2. KARDEGIC (ACETYLSALICYLATE LYSINE) [Concomitant]
  3. PREVISCAN (FLUINDIONE) [Concomitant]

REACTIONS (1)
  - CHOLECYSTITIS ACUTE [None]
